FAERS Safety Report 20569761 (Version 1)
Quarter: 2022Q1

REPORT INFORMATION
  Report Type: Report from Study
  Country: CA (occurrence: CA)
  Receive Date: 20220309
  Receipt Date: 20220309
  Transmission Date: 20220424
  Serious: Yes (Hospitalization)
  Sender: FDA-Public Use
  Company Number: CA-JNJFOC-20220304572

PATIENT
  Age: 33 Year
  Sex: Female
  Weight: 54 kg

DRUGS (3)
  1. STELARA [Suspect]
     Active Substance: USTEKINUMAB
     Indication: Crohn^s disease
     Route: 058
  2. STELARA [Suspect]
     Active Substance: USTEKINUMAB
  3. FLAGYL [Suspect]
     Active Substance: METRONIDAZOLE\METRONIDAZOLE HYDROCHLORIDE
     Indication: Bacterial vaginosis
     Dosage: TWICE A DAY FOR 7 DAYS. PATIENT WAS EXPERIENCING ADVERSE EFFECTS AND DISCONTINUED COURSE WITHOUT COM
     Route: 065
     Dates: start: 20220213, end: 20220217

REACTIONS (2)
  - Bacterial vaginosis [Not Recovered/Not Resolved]
  - Adverse drug reaction [Unknown]

NARRATIVE: CASE EVENT DATE: 20220213
